FAERS Safety Report 8334825-7 (Version None)
Quarter: 2012Q2

REPORT INFORMATION
  Report Type: 
  Country: None (occurrence: None)
  Receive Date: 20120503
  Receipt Date: 20100817
  Transmission Date: 20120825
  Serious: No
  Sender: FDA-Public Use
  Company Number: US-TEVA-2010004369

PATIENT
  Sex: Male
  Weight: 99.88 kg

DRUGS (4)
  1. NUVIGIL [Suspect]
     Indication: SLEEP APNOEA SYNDROME
     Dosage: 150 MILLIGRAM;
     Route: 048
     Dates: start: 20100810
  2. ABILIFY [Concomitant]
     Dates: start: 20050101
  3. NUVIGIL [Suspect]
     Indication: ASTHENIA
  4. EFFEXOR XR [Concomitant]
     Dates: start: 20040101

REACTIONS (2)
  - FEELING ABNORMAL [None]
  - DIZZINESS [None]
